FAERS Safety Report 20356861 (Version 2)
Quarter: 2022Q1

REPORT INFORMATION
  Report Type: Spontaneous
  Country: US (occurrence: US)
  Receive Date: 20220120
  Receipt Date: 20220129
  Transmission Date: 20220423
  Serious: Yes (Other)
  Sender: FDA-Public Use
  Company Number: US-PURDUE-USA-2022-0290775

PATIENT
  Age: 68 Year
  Sex: Male
  Weight: 76.644 kg

DRUGS (3)
  1. COLACE [Suspect]
     Active Substance: DOCUSATE SODIUM
     Indication: Constipation
     Dosage: UNKNOWN, 3 WEEKS TO A MONTH,
     Route: 048
  2. COLACE [Suspect]
     Active Substance: DOCUSATE SODIUM
     Dosage: ONCE A DAY THEN INCREASED TO TWICE DAILY
     Route: 048
     Dates: start: 20211101
  3. CELLCEPT                           /01275102/ [Concomitant]
     Indication: Lung disorder
     Dosage: 500 MG, 6 DAILY (3 IN THE MORNING 3 AT NIGHT WITH BREAKFAST AND DINNER)
     Route: 048
     Dates: start: 2016

REACTIONS (2)
  - Haematochezia [Not Recovered/Not Resolved]
  - Diarrhoea [Not Recovered/Not Resolved]

NARRATIVE: CASE EVENT DATE: 20211101
